FAERS Safety Report 20730731 (Version 1)
Quarter: 2022Q2

REPORT INFORMATION
  Report Type: Spontaneous
  Country: US (occurrence: None)
  Receive Date: 20220418
  Receipt Date: 20220418
  Transmission Date: 20220721
  Serious: No
  Sender: FDA-Public Use
  Company Number: None

PATIENT

DRUGS (1)
  1. PREMARIN VAGINAL [Suspect]
     Active Substance: ESTROGENS, CONJUGATED
     Dosage: OTHER QUANTITY : 1.06 OUNCE(S);?FREQUENCY : TWICE A WEEK;?
     Route: 061

REACTIONS (1)
  - Product label confusion [None]

NARRATIVE: CASE EVENT DATE: 20220402
